FAERS Safety Report 6743138-6 (Version None)
Quarter: 2010Q2

REPORT INFORMATION
  Report Type: 
  Country: None (occurrence: None)
  Receive Date: 20100527
  Receipt Date: 20100520
  Transmission Date: 20101027
  Serious: Yes (Hospitalization, Other)
  Sender: FDA-Public Use
  Company Number: PHHY2010AR32905

PATIENT
  Sex: Female

DRUGS (2)
  1. DIOVAN [Suspect]
     Indication: HYPERTENSION
     Dosage: 160 MG, 1 TABLET DAILY
     Dates: start: 20100514, end: 20100519
  2. DIOVAN [Suspect]
     Dosage: 160 MG, 1 TABLET DAILY
     Dates: start: 20100520

REACTIONS (5)
  - BLOOD PRESSURE INADEQUATELY CONTROLLED [None]
  - DYSPHONIA [None]
  - EXPIRED DRUG ADMINISTERED [None]
  - HYPERTENSION [None]
  - PARALYSIS [None]
